FAERS Safety Report 9214173 (Version 4)
Quarter: 2013Q4

REPORT INFORMATION
  Report Type: Spontaneous
  Country: US (occurrence: US)
  Receive Date: 20130405
  Receipt Date: 20131004
  Transmission Date: 20140711
  Serious: No
  Sender: FDA-Public Use
  Company Number: US-009507513-1304USA002559

PATIENT
  Sex: Male
  Weight: 61.22 kg

DRUGS (11)
  1. MIRALAX [Suspect]
     Indication: CONSTIPATION
     Dosage: 5.67 G, QD
     Route: 048
     Dates: start: 2013
  2. MIRALAX [Suspect]
     Indication: MEDICAL OBSERVATION
  3. MAGNESIA [MILK OF] [Concomitant]
     Indication: CONSTIPATION
     Dosage: UNK, UNKNOWN
  4. IBUPROFEN [Concomitant]
     Indication: PRODUCT USED FOR UNKNOWN INDICATION
     Dosage: 200 MG, UNK
  5. TAMSULOSIN HYDROCHLORIDE [Concomitant]
     Indication: PROSTATOMEGALY
     Dosage: 0.4 MG, UNKNOWN
  6. FINASTERIDE [Concomitant]
     Indication: PROSTATOMEGALY
     Dosage: 5 MG, UNKNOWN
  7. OCUVITE [Concomitant]
     Indication: EYE DISORDER
     Dosage: UNK, UNKNOWN
  8. ASPIRIN [Concomitant]
     Indication: PRODUCT USED FOR UNKNOWN INDICATION
     Dosage: 81 MG, UNKNOWN
  9. SYSTANE [Concomitant]
     Indication: PRODUCT USED FOR UNKNOWN INDICATION
     Dosage: UNK, UNKNOWN
  10. ALEVE [Concomitant]
     Indication: ARTHRITIS
     Dosage: UNK, UNKNOWN
  11. WAL-ZAN [Concomitant]
     Indication: DYSPEPSIA
     Dosage: UNK, UNKNOWN

REACTIONS (4)
  - Constipation [Recovered/Resolved]
  - Drug effect decreased [Unknown]
  - Underdose [Unknown]
  - Incorrect drug administration duration [Unknown]
